FAERS Safety Report 20582590 (Version 3)
Quarter: 2022Q4

REPORT INFORMATION
  Report Type: Spontaneous
  Country: US (occurrence: US)
  Receive Date: 20220311
  Receipt Date: 20221006
  Transmission Date: 20230113
  Serious: Yes (Other)
  Sender: FDA-Public Use
  Company Number: US-SA-SAC20220310000700

PATIENT
  Age: 61 Year
  Sex: Male

DRUGS (3)
  1. ZANTAC [Suspect]
     Active Substance: RANITIDINE HYDROCHLORIDE
     Indication: Abdominal discomfort
     Dosage: 75 MG, QW
     Route: 065
     Dates: start: 200607
  2. ZANTAC [Suspect]
     Active Substance: RANITIDINE HYDROCHLORIDE
     Indication: Hyperchlorhydria
     Dosage: 150 MG, QW
     Route: 065
     Dates: end: 201906
  3. ZANTAC [Suspect]
     Active Substance: RANITIDINE HYDROCHLORIDE
     Indication: Dyspepsia

REACTIONS (4)
  - Bladder cancer [Unknown]
  - Prostate cancer [Unknown]
  - Precancerous cells present [Unknown]
  - Erosive oesophagitis [Unknown]

NARRATIVE: CASE EVENT DATE: 20091001
